FAERS Safety Report 4429263-3 (Version None)
Quarter: 2004Q3

REPORT INFORMATION
  Report Type: 
  Country: None (occurrence: None)
  Receive Date: 20040817
  Receipt Date: 20040817
  Transmission Date: 20050211
  Serious: Yes (Hospitalization)
  Sender: FDA-Public Use
  Company Number: None

PATIENT
  Age: 68 Year
  Sex: Female
  Weight: 126 kg

DRUGS (12)
  1. SOLU-MEDROL [Suspect]
     Indication: HYPOXIA
     Dosage: 60 MG Q6H IV
     Route: 042
     Dates: start: 20040428, end: 20040501
  2. SOLU-MEDROL [Suspect]
     Indication: PNEUMONIA
     Dosage: 60 MG Q6H IV
     Route: 042
     Dates: start: 20040428, end: 20040501
  3. LEVOFLOXACIN [Concomitant]
  4. ZOSYN [Concomitant]
  5. DUONEB [Concomitant]
  6. NORVASC [Concomitant]
  7. BUMEX [Concomitant]
  8. POTASSIUM CHLORIDE [Concomitant]
  9. MAGNESIUM OXIDE [Concomitant]
  10. MECLIZINE [Concomitant]
  11. METOPROLOL [Concomitant]
  12. GLIPIZIDE [Concomitant]

REACTIONS (2)
  - BLOOD GLUCOSE INCREASED [None]
  - MEDICATION ERROR [None]
